FAERS Safety Report 6689158-1 (Version None)
Quarter: 2010Q2

REPORT INFORMATION
  Report Type: 
  Country: None (occurrence: None)
  Receive Date: 20100420
  Receipt Date: 20100406
  Transmission Date: 20101027
  Serious: Yes (Hospitalization)
  Sender: FDA-Public Use
  Company Number: AU-GENENTECH-296129

PATIENT
  Sex: Female

DRUGS (14)
  1. MABTHERA [Suspect]
     Indication: DIFFUSE LARGE B-CELL LYMPHOMA
     Dosage: 700 MG, UNK
     Route: 065
     Dates: start: 20091127
  2. MABTHERA [Suspect]
     Dosage: 700 MG, UNK
     Route: 065
     Dates: start: 20091214
  3. PREDNISONE TAB [Suspect]
     Indication: DIFFUSE LARGE B-CELL LYMPHOMA
     Dosage: 100 MG/KG, QD
     Route: 065
     Dates: start: 20091107, end: 20091201
  4. PREDNISONE TAB [Suspect]
     Dosage: 50 MG, QD
     Route: 065
     Dates: start: 20091121
  5. PREDNISONE TAB [Suspect]
     Dosage: 100 MG, QD
     Route: 065
     Dates: start: 20091127, end: 20091201
  6. PREDNISONE TAB [Suspect]
     Dosage: 100 MG, QD
     Route: 065
     Dates: start: 20091214, end: 20091218
  7. CYCLOPHOSPHAMIDE [Suspect]
     Indication: DIFFUSE LARGE B-CELL LYMPHOMA
     Dosage: 1300 MG, UNK
     Route: 065
     Dates: start: 20091127
  8. CYCLOPHOSPHAMIDE [Suspect]
     Dosage: 1300 MG, UNK
     Route: 065
     Dates: start: 20091214
  9. DOXORUBICIN HCL [Suspect]
     Indication: DIFFUSE LARGE B-CELL LYMPHOMA
     Dosage: 90 MG, UNK
     Route: 065
     Dates: start: 20091127
  10. DOXORUBICIN HCL [Suspect]
     Dosage: 90 MG, UNK
     Route: 065
     Dates: start: 20091214
  11. VINCRISTINE [Suspect]
     Indication: DIFFUSE LARGE B-CELL LYMPHOMA
     Dosage: 2 MG, UNK
     Route: 065
     Dates: start: 20091127
  12. VINCRISTINE [Suspect]
     Dosage: 2 MG, UNK
     Route: 065
     Dates: start: 20091214
  13. PEGFILGRASTIM [Suspect]
     Indication: DIFFUSE LARGE B-CELL LYMPHOMA
     Dosage: 6 MG, UNK
     Dates: start: 20091128
  14. PEGFILGRASTIM [Suspect]
     Dosage: 6 MG, UNK
     Route: 065
     Dates: start: 20091215

REACTIONS (1)
  - GASTRITIS [None]
